FAERS Safety Report 5649009-0 (Version None)
Quarter: 2008Q1

REPORT INFORMATION
  Report Type: 
  Country: None (occurrence: None)
  Receive Date: 20080304
  Receipt Date: 20080131
  Transmission Date: 20080703
  Serious: No
  Sender: FDA-Public Use
  Company Number: US-BAYER-US-2007-039188

PATIENT
  Age: 43 Year
  Sex: Female

DRUGS (7)
  1. MAGNEVIST [Suspect]
     Indication: NUCLEAR MAGNETIC RESONANCE IMAGING
     Dosage: UNIT DOSE: 20 ML
     Route: 042
     Dates: start: 20071010, end: 20071010
  2. LEXAPRO [Concomitant]
  3. ADVAIR DISKUS 100/50 [Concomitant]
  4. SINGULAIR [Concomitant]
     Dosage: UNIT DOSE: 10 MG
  5. LIPITOR [Concomitant]
     Dosage: UNIT DOSE: 10 MG
  6. M.V.I. [Concomitant]
  7. ASPIRIN [Concomitant]

REACTIONS (6)
  - COUGH [None]
  - FLUSHING [None]
  - NASAL CONGESTION [None]
  - PRURITUS [None]
  - RASH [None]
  - URTICARIA [None]
